FAERS Safety Report 23360822 (Version 2)
Quarter: 2024Q1

REPORT INFORMATION
  Report Type: Spontaneous
  Country: US (occurrence: US)
  Receive Date: 20240103
  Receipt Date: 20240104
  Transmission Date: 20240410
  Serious: No
  Sender: FDA-Public Use
  Company Number: US-ABBVIE-5568684

PATIENT
  Sex: Female
  Weight: 91 kg

DRUGS (2)
  1. LASTACAFT [Suspect]
     Active Substance: ALCAFTADINE
     Indication: Eye pruritus
     Dosage: FORM STRENGTH:  0.25 PERCENT/ 1 PRODUCT DROP(S)
     Route: 047
     Dates: start: 20231027, end: 20231230
  2. SYSTANE (HYPROMELLOSE 2910 (4000 MPA.S)) [Concomitant]
     Active Substance: HYPROMELLOSE 2910 (4000 MPA.S)
     Indication: Ocular hyperaemia
     Dosage: EYE DROPS
     Route: 065

REACTIONS (6)
  - Eye pain [Recovered/Resolved]
  - Seasonal allergy [Unknown]
  - Ocular hyperaemia [Recovered/Resolved]
  - Adverse reaction [Unknown]
  - Eye pain [Recovering/Resolving]
  - Ocular hyperaemia [Recovering/Resolving]

NARRATIVE: CASE EVENT DATE: 20230101
